FAERS Safety Report 12791599 (Version 1)
Quarter: 2016Q3

REPORT INFORMATION
  Report Type: Spontaneous
  Country: US (occurrence: US)
  Receive Date: 20160929
  Receipt Date: 20160929
  Transmission Date: 20161109
  Serious: Yes (Death)
  Sender: FDA-Public Use
  Company Number: None

PATIENT
  Age: 44 Year
  Sex: Female
  Weight: 76.5 kg

DRUGS (1)
  1. LURASIDONE SUNOVIAN [Suspect]
     Active Substance: LURASIDONE
     Indication: BIPOLAR DISORDER
     Route: 048

REACTIONS (2)
  - Completed suicide [None]
  - Akathisia [None]

NARRATIVE: CASE EVENT DATE: 20160208
